FAERS Safety Report 19101339 (Version 1)
Quarter: 2021Q2

REPORT INFORMATION
  Report Type: Spontaneous
  Country: ES (occurrence: ES)
  Receive Date: 20210407
  Receipt Date: 20210407
  Transmission Date: 20210717
  Serious: Yes (Hospitalization)
  Sender: FDA-Public Use
  Company Number: ES-MYLANLABS-2021M1020323

PATIENT
  Age: 29 Year
  Sex: Male

DRUGS (2)
  1. CIDOFOVIR. [Suspect]
     Active Substance: CIDOFOVIR
     Indication: BOWEN^S DISEASE
     Dosage: 5 MILLILITER, QW,RECEIVED....
     Route: 026
  2. TACROLIMUS. [Concomitant]
     Active Substance: TACROLIMUS
     Indication: IMMUNOSUPPRESSANT DRUG THERAPY
     Dosage: 2 MILLIGRAM, QD
     Route: 065

REACTIONS (3)
  - Nail necrosis [Recovered/Resolved]
  - Off label use [Unknown]
  - Onychalgia [Recovered/Resolved]
